FAERS Safety Report 7679004-1 (Version None)
Quarter: 2011Q3

REPORT INFORMATION
  Report Type: 
  Country: None (occurrence: None)
  Receive Date: 20110812
  Receipt Date: 20110809
  Transmission Date: 20111222
  Serious: No
  Sender: FDA-Public Use
  Company Number: US-BIOGENIDEC-2011BI030171

PATIENT
  Age: 60 Year
  Sex: Female

DRUGS (1)
  1. TYSABRI [Suspect]
     Indication: MULTIPLE SCLEROSIS
     Route: 042
     Dates: start: 20071231

REACTIONS (5)
  - NASOPHARYNGITIS [None]
  - MULTIPLE SCLEROSIS RELAPSE [None]
  - RHINORRHOEA [None]
  - LYMPHADENOPATHY [None]
  - DYSPHONIA [None]
